FAERS Safety Report 9372282 (Version 1)
Quarter: 2013Q2

REPORT INFORMATION
  Report Type: Report from Study
  Country: US (occurrence: US)
  Receive Date: 20130627
  Receipt Date: 20130627
  Transmission Date: 20140414
  Serious: Yes (Other)
  Sender: FDA-Public Use
  Company Number: US-MYLANLABS-2012S1019634

PATIENT
  Age: 36 Year
  Sex: Female
  Weight: 128.37 kg

DRUGS (4)
  1. CLOZAPINE TABLETS [Suspect]
     Indication: BIPOLAR I DISORDER
     Dates: end: 20121231
  2. ABILIFY [Concomitant]
     Indication: MOOD DISORDER DUE TO A GENERAL MEDICAL CONDITION
     Dates: start: 20121227
  3. DEPAKOTE ER [Concomitant]
     Indication: MOOD DISORDER DUE TO A GENERAL MEDICAL CONDITION
  4. LAMICTAL [Concomitant]
     Indication: MOOD DISORDER DUE TO A GENERAL MEDICAL CONDITION

REACTIONS (1)
  - Granulocytopenia [Not Recovered/Not Resolved]
